FAERS Safety Report 5053053-4 (Version None)
Quarter: 2006Q3

REPORT INFORMATION
  Report Type: 
  Country: None (occurrence: None)
  Receive Date: 20060717
  Receipt Date: 20060607
  Transmission Date: 20061208
  Serious: Yes (Death)
  Sender: FDA-Public Use
  Company Number: AU-BRISTOL-MYERS SQUIBB COMPANY-13407036

PATIENT
  Age: 74 Year
  Sex: Male
  Weight: 123 kg

DRUGS (19)
  1. ERBITUX [Suspect]
     Indication: COLORECTAL CANCER METASTATIC
     Route: 041
     Dates: start: 20050831
  2. IRINOTECAN [Suspect]
     Indication: COLORECTAL CANCER METASTATIC
     Route: 042
     Dates: start: 20050831
  3. FOLINIC ACID [Suspect]
     Indication: COLORECTAL CANCER METASTATIC
     Route: 042
     Dates: start: 20050831
  4. FLUOROURACIL [Suspect]
     Indication: COLORECTAL CANCER METASTATIC
     Route: 042
     Dates: start: 20050831
  5. OMEPRAZOLE [Concomitant]
     Indication: GASTROOESOPHAGEAL REFLUX DISEASE
  6. NIFEDIPINE [Concomitant]
     Indication: HYPERTENSION
  7. NITRAZEPAM [Concomitant]
     Indication: INSOMNIA
  8. AVAPRO HCT [Concomitant]
     Indication: HYPERTENSION
  9. PROPANOL [Concomitant]
     Indication: HYPERTENSION
  10. MINOCYCLINE HCL [Concomitant]
     Indication: RASH
  11. BETAMETHASONE [Concomitant]
     Indication: PARONYCHIA
  12. HYDROCORTISONE [Concomitant]
     Indication: RASH
  13. BETADINE [Concomitant]
     Indication: PARONYCHIA
  14. PREDNEFRIN [Concomitant]
     Indication: OCULAR HYPERAEMIA
  15. PHENERGAN HCL [Concomitant]
     Indication: PREMEDICATION
  16. ONDANSETRON HCL [Concomitant]
     Indication: NAUSEA
  17. DEXAMETHASONE TAB [Concomitant]
     Indication: PREMEDICATION
  18. CALAMINE [Concomitant]
     Indication: RASH
  19. LANOLIN [Concomitant]
     Indication: RASH

REACTIONS (1)
  - ACUTE MYOCARDIAL INFARCTION [None]
